FAERS Safety Report 23193318 (Version 1)
Quarter: 2023Q4

REPORT INFORMATION
  Report Type: Spontaneous
  Country: HR (occurrence: HR)
  Receive Date: 20231116
  Receipt Date: 20231116
  Transmission Date: 20240109
  Serious: Yes (Hospitalization)
  Sender: FDA-Public Use
  Company Number: None

PATIENT
  Age: 78 Year
  Sex: Male
  Weight: 71 kg

DRUGS (1)
  1. IMBRUVICA [Suspect]
     Active Substance: IBRUTINIB
     Indication: Mantle cell lymphoma
     Dosage: JA INA LIJEKA560 MGDOZIRANJE1X560 MG
     Route: 048
     Dates: start: 20230207, end: 20231005

REACTIONS (4)
  - Blindness [Not Recovered/Not Resolved]
  - Papilloedema [Not Recovered/Not Resolved]
  - Amaurosis [Not Recovered/Not Resolved]
  - Optic neuropathy [Not Recovered/Not Resolved]

NARRATIVE: CASE EVENT DATE: 20231001
